FAERS Safety Report 6192156-8 (Version None)
Quarter: 2009Q2

REPORT INFORMATION
  Report Type: 
  Country: None (occurrence: None)
  Receive Date: 20090515
  Receipt Date: 20090508
  Transmission Date: 20091009
  Serious: Yes (Other)
  Sender: FDA-Public Use
  Company Number: PHHY2009MX16714

PATIENT
  Age: 41 Year
  Sex: Female

DRUGS (3)
  1. EXFORGE [Suspect]
     Indication: HYPERTENSION
     Dosage: 1 TABLET (160/10 MG) PER DAY
     Route: 048
     Dates: start: 20090416, end: 20090424
  2. PEMIX [Concomitant]
  3. NEXIUM [Concomitant]

REACTIONS (7)
  - BLOOD URINE PRESENT [None]
  - COLITIS [None]
  - CONSTIPATION [None]
  - GASTRIC DISORDER [None]
  - HYPERTENSION [None]
  - OEDEMA [None]
  - VASODILATATION [None]
